FAERS Safety Report 23896428 (Version 2)
Quarter: 2025Q2

REPORT INFORMATION
  Report Type: Spontaneous
  Country: CN (occurrence: CN)
  Receive Date: 20240524
  Receipt Date: 20250608
  Transmission Date: 20250717
  Serious: Yes (Hospitalization)
  Sender: COHERUS
  Company Number: CN-SHANGHAI JUNSHI BIOSCIENCES CO., LTD.-CN2024010051

PATIENT

DRUGS (5)
  1. TORIPALIMAB [Suspect]
     Active Substance: TORIPALIMAB
     Indication: Ureteric cancer
     Route: 041
     Dates: start: 20240222, end: 20240222
  2. NEDAPLATIN [Suspect]
     Active Substance: NEDAPLATIN
     Indication: Ureteric cancer
     Dosage: 50 MG (D1-D3), QD
     Route: 041
     Dates: start: 20240222, end: 20240225
  3. PACLITAXEL [Suspect]
     Active Substance: PACLITAXEL
     Indication: Ureteric cancer
     Route: 041
     Dates: start: 20240222, end: 20240223
  4. GEMCITABINE HYDROCHLORIDE [Suspect]
     Active Substance: GEMCITABINE HYDROCHLORIDE
     Indication: Ureteric cancer
     Route: 041
     Dates: start: 20240226, end: 20240226
  5. BLEOMYCIN A5 [Concomitant]
     Active Substance: BLEOMYCIN A5
     Indication: Ureteric cancer
     Dates: start: 20240222

REACTIONS (2)
  - Myelosuppression [Recovering/Resolving]
  - Off label use [Unknown]

NARRATIVE: CASE EVENT DATE: 20240222
